FAERS Safety Report 7910641-2 (Version None)
Quarter: 2011Q4

REPORT INFORMATION
  Report Type: 
  Country: None (occurrence: None)
  Receive Date: 20111111
  Receipt Date: 20111107
  Transmission Date: 20120403
  Serious: Yes (Death)
  Sender: FDA-Public Use
  Company Number: CA-ASTRAZENECA-2011SE67387

PATIENT
  Age: 9 Year
  Sex: Male

DRUGS (13)
  1. SEROQUEL [Suspect]
     Route: 048
  2. SERTRALINE HYDROCHLORIDE [Suspect]
     Dosage: 20MG, TWO EVERY DAY
     Route: 065
  3. SERTRALINE HYDROCHLORIDE [Suspect]
     Dosage: 20MG, ONE EVERY DAY
     Route: 065
  4. FLOVENT HFA [Suspect]
     Dosage: 250 MCG, TWO EVERY DAY
     Route: 055
  5. ZYPREXA [Suspect]
     Dosage: 2.5MG, THREE EVERY ONE DAY
     Route: 065
  6. CLONIDINE [Suspect]
     Dosage: 50MG, TWO EVERY ONE DAY
     Route: 065
  7. CLONIDINE [Suspect]
     Dosage: 25MG, TWO EVERY ONE DAY
  8. NASONEX [Suspect]
     Dosage: 100 MCG, TWO EVERY ONE DAY
     Route: 045
  9. ZYPREXA [Suspect]
     Dosage: 2.5MG, TWO EVERY ONE DAY
     Route: 065
  10. HALOPERIDOL [Suspect]
     Route: 065
  11. METHYLPHENIDATE HCL [Suspect]
     Route: 065
  12. ALBUTEROL [Suspect]
     Dosage: 200 MCG, TWO EVERY ONE DAY
     Route: 055
  13. STRATTERA [Suspect]
     Dosage: 40MG, TWO EVERY ONE DAY
     Route: 065

REACTIONS (6)
  - DYSSTASIA [None]
  - GASTRIC DILATATION [None]
  - WEIGHT INCREASED [None]
  - DIZZINESS [None]
  - EYE MOVEMENT DISORDER [None]
  - DYSPNOEA [None]
